FAERS Safety Report 4634028-3 (Version None)
Quarter: 2005Q2

REPORT INFORMATION
  Report Type: 
  Country: None (occurrence: None)
  Receive Date: 20050325
  Receipt Date: 20041118
  Transmission Date: 20051028
  Serious: No
  Sender: FDA-Public Use
  Company Number: USA041183292

PATIENT
  Age: 84 Year
  Sex: Female

DRUGS (8)
  1. FORTEO [Suspect]
     Indication: OSTEOPOROSIS
     Dates: start: 20041028
  2. EVISTA [Concomitant]
     Indication: COMPRESSION FRACTURE
  3. PREDNISONE [Concomitant]
  4. DEXTRA (DEXTROMETHORPHAN HYDROBROMIDE) [Concomitant]
  5. ACTONEL [Concomitant]
  6. VICODIN [Concomitant]
  7. ALTACE [Concomitant]
  8. LEXAPRO [Concomitant]

REACTIONS (12)
  - ANXIETY [None]
  - ARTHRALGIA [None]
  - ASTHENIA [None]
  - CONTUSION [None]
  - DIZZINESS [None]
  - FALL [None]
  - FRACTURE [None]
  - HYPERSOMNIA [None]
  - LACERATION [None]
  - MUSCLE SPASMS [None]
  - RED BLOOD CELL SEDIMENTATION RATE INCREASED [None]
  - TREMOR [None]
